FAERS Safety Report 16176772 (Version 2)
Quarter: 2019Q2

REPORT INFORMATION
  Report Type: Spontaneous
  Country: US (occurrence: US)
  Receive Date: 20190409
  Receipt Date: 20190419
  Transmission Date: 20190711
  Serious: No
  Sender: FDA-Public Use
  Company Number: US-009507513-1904USA002261

PATIENT
  Age: 15 Year
  Sex: Female
  Weight: 62.6 kg

DRUGS (1)
  1. NEXPLANON [Suspect]
     Active Substance: ETONOGESTREL
     Indication: CONTRACEPTION
     Dosage: 1 IMPLANT
     Route: 059
     Dates: start: 20190328

REACTIONS (4)
  - Product quality issue [Unknown]
  - No adverse event [Unknown]
  - Device expulsion [Recovered/Resolved]
  - Device deployment issue [Recovered/Resolved]

NARRATIVE: CASE EVENT DATE: 20190328
